FAERS Safety Report 16568538 (Version 1)
Quarter: 2019Q3

REPORT INFORMATION
  Report Type: Spontaneous
  Country: FR (occurrence: FR)
  Receive Date: 20190712
  Receipt Date: 20190712
  Transmission Date: 20191004
  Serious: Yes (Other)
  Sender: FDA-Public Use
  Company Number: PHHY2019FR158676

PATIENT
  Age: 72 Year
  Sex: Female
  Weight: 83 kg

DRUGS (10)
  1. MEROPENEM ANHYDROUS [Suspect]
     Active Substance: MEROPENEM ANHYDROUS
     Indication: SEPSIS
     Dosage: UNK (POSOLOGIE VARIABLE)
     Route: 042
  2. OMEPRAZOLE. [Concomitant]
     Active Substance: OMEPRAZOLE
     Indication: PRODUCT USED FOR UNKNOWN INDICATION
     Dosage: 40 MG, QD
     Route: 042
  3. PROPOFOL. [Concomitant]
     Active Substance: PROPOFOL
     Indication: SEDATION
     Dosage: UNK
     Route: 042
  4. HYDROCORTISONE. [Concomitant]
     Active Substance: HYDROCORTISONE
     Indication: PRODUCT USED FOR UNKNOWN INDICATION
     Dosage: UNK
     Route: 042
  5. IOMERON [Concomitant]
     Active Substance: IOMEPROL
     Indication: COMPUTERISED TOMOGRAM
     Dosage: UNK
     Route: 042
  6. CANCIDAS [Suspect]
     Active Substance: CASPOFUNGIN ACETATE
     Indication: SEPSIS
     Dosage: 50 MG, QD
     Route: 042
     Dates: start: 20190522
  7. NOVORAPID [Concomitant]
     Active Substance: INSULIN ASPART
     Indication: DIABETES MELLITUS
     Dosage: UNK
     Route: 042
  8. NORADRENALINE [Concomitant]
     Active Substance: NOREPINEPHRINE
     Indication: PRODUCT USED FOR UNKNOWN INDICATION
     Dosage: UNK
     Route: 042
  9. VANCOMYCIN SANDOZ [Suspect]
     Active Substance: VANCOMYCIN
     Indication: SEPSIS
     Dosage: POSOLOGIE VARIABLE
     Route: 041
  10. SUFENTANIL [Concomitant]
     Active Substance: SUFENTANIL
     Indication: SEDATION
     Dosage: UNK
     Route: 042

REACTIONS (2)
  - Rash erythematous [Not Recovered/Not Resolved]
  - Rash macular [Not Recovered/Not Resolved]

NARRATIVE: CASE EVENT DATE: 20190530
